FAERS Safety Report 8168850-6 (Version None)
Quarter: 2012Q1

REPORT INFORMATION
  Report Type: 
  Country: None (occurrence: None)
  Receive Date: 20120227
  Receipt Date: 20120214
  Transmission Date: 20120608
  Serious: Yes (Other)
  Sender: FDA-Public Use
  Company Number: IT-MYLANLABS-2012S1003296

PATIENT
  Age: 77 Year
  Sex: Female

DRUGS (4)
  1. CARDURA [Concomitant]
     Indication: PRODUCT USED FOR UNKNOWN INDICATION
  2. LERCAPREL [Concomitant]
     Indication: PRODUCT USED FOR UNKNOWN INDICATION
  3. SIMVASTATIN [Concomitant]
     Indication: PRODUCT USED FOR UNKNOWN INDICATION
  4. INDAPAMIDE [Suspect]
     Indication: BLOOD PRESSURE INCREASED
     Dates: start: 20110901, end: 20120211

REACTIONS (2)
  - ORBITAL OEDEMA [None]
  - EYE PRURITUS [None]
